FAERS Safety Report 20832339 (Version 1)
Quarter: 2022Q2

REPORT INFORMATION
  Report Type: Spontaneous
  Country: US (occurrence: US)
  Receive Date: 20220516
  Receipt Date: 20220516
  Transmission Date: 20220721
  Serious: Yes (Other)
  Sender: FDA-Public Use
  Company Number: US-LUPIN PHARMACEUTICALS INC.-2022-07105

PATIENT
  Age: 46 Year
  Sex: Male

DRUGS (8)
  1. VANCOMYCIN [Suspect]
     Active Substance: VANCOMYCIN
     Indication: Pain
     Dosage: UNK
     Route: 065
  2. VANCOMYCIN [Suspect]
     Active Substance: VANCOMYCIN
     Indication: Swelling
  3. CEFAZOLIN [Suspect]
     Active Substance: CEFAZOLIN
     Indication: Pain
     Dosage: UNK
     Route: 065
  4. CEFAZOLIN [Suspect]
     Active Substance: CEFAZOLIN
     Indication: Swelling
  5. AZTREONAM [Concomitant]
     Active Substance: AZTREONAM
     Indication: Pain
     Dosage: UNK
     Route: 065
  6. AZTREONAM [Concomitant]
     Active Substance: AZTREONAM
     Indication: Swelling
  7. CLINDAMYCIN [Concomitant]
     Active Substance: CLINDAMYCIN
     Indication: Pain
     Dosage: UNK
     Route: 065
  8. CLINDAMYCIN [Concomitant]
     Active Substance: CLINDAMYCIN
     Indication: Swelling

REACTIONS (2)
  - Acute generalised exanthematous pustulosis [Recovering/Resolving]
  - Vancomycin infusion reaction [Unknown]
